FAERS Safety Report 19499296 (Version 2)
Quarter: 2021Q3

REPORT INFORMATION
  Report Type: Spontaneous
  Country: US (occurrence: US)
  Receive Date: 20210706
  Receipt Date: 20210719
  Transmission Date: 20211014
  Serious: Yes (Other)
  Sender: FDA-Public Use
  Company Number: US-ELI_LILLY_AND_COMPANY-US202106012082

PATIENT
  Age: 83 Year
  Sex: Male

DRUGS (3)
  1. TRULICITY [Suspect]
     Active Substance: DULAGLUTIDE
     Indication: PRODUCT USED FOR UNKNOWN INDICATION
     Dosage: UNK UNK, UNKNOWN
     Route: 065
  2. BASAGLAR [Suspect]
     Active Substance: INSULIN GLARGINE
     Indication: PRODUCT USED FOR UNKNOWN INDICATION
     Dosage: UNK UNK, UNKNOWN
     Route: 065
  3. TRULICITY [Suspect]
     Active Substance: DULAGLUTIDE
     Dosage: UNK
     Route: 065

REACTIONS (15)
  - Sensory loss [Unknown]
  - Glycosylated haemoglobin increased [Unknown]
  - Fatigue [Not Recovered/Not Resolved]
  - Confusional state [Not Recovered/Not Resolved]
  - Blood pressure decreased [Not Recovered/Not Resolved]
  - Oedema peripheral [Not Recovered/Not Resolved]
  - Balance disorder [Not Recovered/Not Resolved]
  - Injection site mass [Recovered/Resolved]
  - Neuropathy peripheral [Not Recovered/Not Resolved]
  - Visual impairment [Not Recovered/Not Resolved]
  - Mobility decreased [Not Recovered/Not Resolved]
  - Oedema [Not Recovered/Not Resolved]
  - Asthenia [Unknown]
  - Cold-stimulus headache [Unknown]
  - Hypoaesthesia [Unknown]

NARRATIVE: CASE EVENT DATE: 20210706
